FAERS Safety Report 5093089-0 (Version None)
Quarter: 2006Q3

REPORT INFORMATION
  Report Type: 
  Country: None (occurrence: None)
  Receive Date: 20060828
  Receipt Date: 20060817
  Transmission Date: 20061208
  Serious: Yes (Disabling)
  Sender: FDA-Public Use
  Company Number: TCI2006A03430

PATIENT
  Age: 59 Year
  Sex: Female

DRUGS (15)
  1. ACTOS [Suspect]
     Indication: BLOOD CREATININE INCREASED
     Dosage: 15 MG (15 MG, 1 IN 1 D) PER ORAL; SEE IMAGE
     Route: 048
     Dates: start: 20050325, end: 20050701
  2. ACTOS [Suspect]
     Indication: BLOOD URINE PRESENT
     Dosage: 15 MG (15 MG, 1 IN 1 D) PER ORAL; SEE IMAGE
     Route: 048
     Dates: start: 20050325, end: 20050701
  3. ACTOS [Suspect]
     Indication: DIABETES MELLITUS
     Dosage: 15 MG (15 MG, 1 IN 1 D) PER ORAL; SEE IMAGE
     Route: 048
     Dates: start: 20050325, end: 20050701
  4. ACTOS [Suspect]
     Indication: GENERALISED OEDEMA
     Dosage: 15 MG (15 MG, 1 IN 1 D) PER ORAL; SEE IMAGE
     Route: 048
     Dates: start: 20050325, end: 20050701
  5. ACTOS [Suspect]
     Indication: PROTEIN URINE PRESENT
     Dosage: 15 MG (15 MG, 1 IN 1 D) PER ORAL; SEE IMAGE
     Route: 048
     Dates: start: 20050325, end: 20050701
  6. ACTOS [Suspect]
     Indication: RENAL FAILURE ACUTE
     Dosage: 15 MG (15 MG, 1 IN 1 D) PER ORAL; SEE IMAGE
     Route: 048
     Dates: start: 20050325, end: 20050701
  7. ACTOS [Suspect]
     Indication: BLOOD CREATININE INCREASED
     Dosage: 15 MG (15 MG, 1 IN 1 D) PER ORAL; SEE IMAGE
     Route: 048
     Dates: start: 20050702, end: 20060731
  8. ACTOS [Suspect]
     Indication: BLOOD URINE PRESENT
     Dosage: 15 MG (15 MG, 1 IN 1 D) PER ORAL; SEE IMAGE
     Route: 048
     Dates: start: 20050702, end: 20060731
  9. ACTOS [Suspect]
     Indication: DIABETES MELLITUS
     Dosage: 15 MG (15 MG, 1 IN 1 D) PER ORAL; SEE IMAGE
     Route: 048
     Dates: start: 20050702, end: 20060731
  10. ACTOS [Suspect]
     Indication: GENERALISED OEDEMA
     Dosage: 15 MG (15 MG, 1 IN 1 D) PER ORAL; SEE IMAGE
     Route: 048
     Dates: start: 20050702, end: 20060731
  11. ACTOS [Suspect]
     Indication: PROTEIN URINE PRESENT
     Dosage: 15 MG (15 MG, 1 IN 1 D) PER ORAL; SEE IMAGE
     Route: 048
     Dates: start: 20050702, end: 20060731
  12. ACTOS [Suspect]
     Indication: RENAL FAILURE ACUTE
     Dosage: 15 MG (15 MG, 1 IN 1 D) PER ORAL; SEE IMAGE
     Route: 048
     Dates: start: 20050702, end: 20060731
  13. BASEN (VOGLIBOSE) [Concomitant]
  14. LIPITOR [Concomitant]
  15. AMARYL [Concomitant]

REACTIONS (2)
  - BLOOD PRESSURE INCREASED [None]
  - RENAL FAILURE ACUTE [None]
